FAERS Safety Report 15070024 (Version 1)
Quarter: 2018Q2

REPORT INFORMATION
  Report Type: Spontaneous
  Country: GB (occurrence: GB)
  Receive Date: 20180626
  Receipt Date: 20180626
  Transmission Date: 20180711
  Serious: Yes (Other)
  Sender: FDA-Public Use
  Company Number: PHHY2018GB025907

PATIENT
  Age: 54 Year
  Sex: Female

DRUGS (5)
  1. ONDANSETRON [Suspect]
     Active Substance: ONDANSETRON
     Indication: INDUCTION OF ANAESTHESIA
     Route: 065
  2. FENTANYL. [Suspect]
     Active Substance: FENTANYL
     Indication: INDUCTION OF ANAESTHESIA
     Route: 065
  3. PROPOFOL. [Suspect]
     Active Substance: PROPOFOL
     Indication: INDUCTION OF ANAESTHESIA
     Route: 065
  4. PARACETAMOL [Suspect]
     Active Substance: ACETAMINOPHEN
     Indication: INDUCTION OF ANAESTHESIA
     Route: 065
  5. PATENT BLUE V [Suspect]
     Active Substance: PATENT BLUE V
     Indication: BIOPSY LYMPH GLAND
     Route: 065

REACTIONS (5)
  - Angioedema [Unknown]
  - Tryptase increased [Recovering/Resolving]
  - Procedural hypotension [Recovered/Resolved]
  - Bronchospasm [Unknown]
  - Flushing [Unknown]
